FAERS Safety Report 4715049-9 (Version None)
Quarter: 2005Q2

REPORT INFORMATION
  Report Type: 
  Country: None (occurrence: None)
  Receive Date: 20050630
  Receipt Date: 20050523
  Transmission Date: 20051028
  Serious: Yes (Other)
  Sender: FDA-Public Use
  Company Number: 214715

PATIENT
  Age: 66 Year
  Sex: Female
  Weight: 80.3 kg

DRUGS (1)
  1. AVASTIN [Suspect]
     Indication: COLON CANCER METASTATIC
     Dosage: 400 MG, QW2, INTRAVENOUS
     Route: 042
     Dates: start: 20040901

REACTIONS (1)
  - MIGRAINE [None]
